FAERS Safety Report 13005830 (Version 1)
Quarter: 2016Q4

REPORT INFORMATION
  Report Type: Spontaneous
  Country: JP (occurrence: JP)
  Receive Date: 20161207
  Receipt Date: 20161207
  Transmission Date: 20170207
  Serious: Yes (Other)
  Sender: FDA-Public Use
  Company Number: JP-PFIZER INC-2016563967

PATIENT
  Age: 6 Year
  Sex: Male

DRUGS (2)
  1. FOSPHENYTOIN SODIUM. [Suspect]
     Active Substance: FOSPHENYTOIN SODIUM
     Indication: FEBRILE CONVULSION
     Dosage: 22.5 MG/KG, UNK
     Route: 042
     Dates: start: 2012
  2. NOBELBAR [Suspect]
     Active Substance: PHENOBARBITAL SODIUM
     Indication: FEBRILE CONVULSION
     Dosage: UNK
     Route: 042

REACTIONS (3)
  - Coma [Recovered/Resolved]
  - Status epilepticus [Recovered/Resolved]
  - Electroencephalogram abnormal [Unknown]
